FAERS Safety Report 23153716 (Version 2)
Quarter: 2023Q4

REPORT INFORMATION
  Report Type: Spontaneous
  Country: AT (occurrence: AT)
  Receive Date: 20231107
  Receipt Date: 20231109
  Transmission Date: 20240110
  Serious: Yes (Other)
  Sender: FDA-Public Use
  Company Number: None

PATIENT
  Age: 30 Year
  Sex: Female

DRUGS (1)
  1. GADOBUTROL [Suspect]
     Active Substance: GADOBUTROL
     Dosage: 1.0 ML
     Dates: start: 20231002, end: 20231002

REACTIONS (14)
  - Headache [Recovered/Resolved]
  - Tachycardia [Unknown]
  - Limb discomfort [Unknown]
  - Somnolence [Unknown]
  - Dizziness [Unknown]
  - Paraesthesia [Unknown]
  - Hypoaesthesia [Unknown]
  - Dysgeusia [Unknown]
  - Headache [Unknown]
  - Abdominal pain lower [Recovered/Resolved]
  - Pain in extremity [Unknown]
  - Hypertension [Unknown]
  - Tremor [Unknown]
  - Pain of skin [Unknown]

NARRATIVE: CASE EVENT DATE: 20231001
